FAERS Safety Report 15088671 (Version 4)
Quarter: 2018Q3

REPORT INFORMATION
  Report Type: Spontaneous
  Country: US (occurrence: US)
  Receive Date: 20180629
  Receipt Date: 20180820
  Transmission Date: 20181010
  Serious: Yes (Life-Threatening, Other)
  Sender: FDA-Public Use
  Company Number: US-PFIZER INC-2018257983

PATIENT
  Age: 71 Year
  Sex: Male

DRUGS (7)
  1. TESSALON [Suspect]
     Active Substance: BENZONATATE
     Indication: COUGH
     Dosage: UNK, AS NEEDED (1?2 THREE TIMES A DAY AS NEEDED)
     Route: 048
     Dates: start: 20180612, end: 201806
  2. COUMADIN [Concomitant]
     Active Substance: WARFARIN SODIUM
     Indication: ATRIAL FIBRILLATION
     Dosage: UNK
  3. UREA. [Concomitant]
     Active Substance: UREA
     Dosage: UNK
  4. METOPROLOL SUCCINATE. [Concomitant]
     Active Substance: METOPROLOL SUCCINATE
     Indication: HYPERTENSION
  5. TESSALON [Suspect]
     Active Substance: BENZONATATE
     Indication: UPPER RESPIRATORY TRACT INFECTION
     Dosage: UNK, 4X/DAY (ONE IN THE MORNING, ONE MIDDAY, TWO AT ABOUT 7:30 AND THEN ANOTHER TWO AT MIDNIGHT)
     Route: 048
     Dates: start: 201806, end: 20180623
  6. AZITHROMYCIN ANHYDROUS. [Concomitant]
     Active Substance: AZITHROMYCIN ANHYDROUS
     Indication: BACTERIAL INFECTION
     Dosage: TAKE 2 TABLETS ON DAY ONE, THEN 1 TABLET A DAY ON DAYS 2?5
     Route: 048
     Dates: start: 20180621
  7. METOPROLOL SUCCINATE. [Concomitant]
     Active Substance: METOPROLOL SUCCINATE
     Indication: ATRIAL FIBRILLATION
     Dosage: 25 MG, 1X/DAY

REACTIONS (8)
  - Laryngospasm [Recovered/Resolved]
  - Intentional product misuse [Unknown]
  - Speech disorder [Recovered/Resolved]
  - Hypoaesthesia oral [Recovered/Resolved]
  - Sleep disorder [Recovered/Resolved]
  - Pharyngeal hypoaesthesia [Recovered/Resolved]
  - Dyspnoea [Recovered/Resolved]
  - Bronchospasm [Recovered/Resolved]

NARRATIVE: CASE EVENT DATE: 201806
